FAERS Safety Report 8297623-9 (Version None)
Quarter: 2012Q2

REPORT INFORMATION
  Report Type: 
  Country: None (occurrence: None)
  Receive Date: 20120419
  Receipt Date: 20120417
  Transmission Date: 20120825
  Serious: Yes (Hospitalization)
  Sender: FDA-Public Use
  Company Number: PHHO2012TR005199

PATIENT
  Sex: Female
  Weight: 80 kg

DRUGS (5)
  1. BLINDED PLACEBO [Suspect]
     Indication: BREAST CANCER METASTATIC
     Dosage: CODE NOT BROKEN
     Dates: start: 20111021, end: 20120329
  2. VINORELBINE [Suspect]
     Indication: BREAST CANCER METASTATIC
     Dosage: 25 MG/M2, UNK
     Dates: start: 20111021, end: 20120323
  3. AFINITOR [Suspect]
     Indication: BREAST CANCER METASTATIC
     Dosage: CODE NOT BROKEN
     Dates: start: 20111021, end: 20120329
  4. BLINDED NO TREATMENT RECEIVED [Suspect]
     Indication: BREAST CANCER METASTATIC
     Dosage: CODE NOT BROKEN
     Dates: start: 20111021, end: 20120329
  5. COMPARATOR TRASTUZUMAB [Suspect]
     Indication: BREAST CANCER METASTATIC
     Dosage: 2 MG/KG, UNK
     Dates: start: 20111021, end: 20120323

REACTIONS (1)
  - DYSPNOEA [None]
